FAERS Safety Report 12677287 (Version 6)
Quarter: 2017Q2

REPORT INFORMATION
  Report Type: Report from Study
  Country: LB (occurrence: LB)
  Receive Date: 20160823
  Receipt Date: 20170605
  Transmission Date: 20170830
  Serious: Yes (Hospitalization, Other)
  Sender: FDA-Public Use
  Company Number: PHHY2012LB115155

PATIENT
  Age: 54 Year
  Sex: Male

DRUGS (1)
  1. GLIVEC [Suspect]
     Active Substance: IMATINIB MESYLATE
     Indication: CHRONIC MYELOID LEUKAEMIA
     Dosage: 400 MG, QD
     Route: 048
     Dates: start: 20071001

REACTIONS (12)
  - Proctalgia [Not Recovered/Not Resolved]
  - Tooth abscess [Recovered/Resolved]
  - Renal pain [Not Recovered/Not Resolved]
  - Subcutaneous abscess [Recovered/Resolved]
  - Diarrhoea [Not Recovered/Not Resolved]
  - Gastroenteritis [Recovering/Resolving]
  - Constipation [Unknown]
  - Influenza [Recovered/Resolved]
  - Haemorrhoids [Recovered/Resolved]
  - Subcutaneous abscess [Recovered/Resolved]
  - Vomiting [Unknown]
  - Pyrexia [Not Recovered/Not Resolved]

NARRATIVE: CASE EVENT DATE: 20121205
